FAERS Safety Report 14033498 (Version 1)
Quarter: 2017Q4

REPORT INFORMATION
  Report Type: Spontaneous
  Country: US (occurrence: US)
  Receive Date: 20171003
  Receipt Date: 20171003
  Transmission Date: 20180321
  Serious: No
  Sender: FDA-Public Use
  Company Number: None

PATIENT
  Age: 53 Year
  Sex: Male
  Weight: 60.75 kg

DRUGS (5)
  1. A MIDSUMMER NIGHT^S CREAM [Suspect]
     Active Substance: COSMETICS
     Indication: DRY SKIN
     Route: 061
  2. BLISS SPA LEMON + SAGE [Suspect]
     Active Substance: COSMETICS
  3. IRIS ANTIMICROBIAL HAND [Suspect]
     Active Substance: CHLOROXYLENOL
     Route: 061
  4. GOLD BOND EXTRA STRENGTH MEDICATED BODY LOTION [Concomitant]
  5. NOW FOODS ADAM MULTI VITAMIN [Concomitant]

REACTIONS (5)
  - Dyshidrotic eczema [None]
  - Hypersensitivity [None]
  - Pruritus [None]
  - Dermatitis contact [None]
  - Erythema [None]

NARRATIVE: CASE EVENT DATE: 20170509
